FAERS Safety Report 26212171 (Version 1)
Quarter: 2025Q4

REPORT INFORMATION
  Report Type: Spontaneous
  Country: CN (occurrence: CN)
  Receive Date: 20251230
  Receipt Date: 20251230
  Transmission Date: 20260117
  Serious: Yes (Hospitalization, Other)
  Sender: BAXTER
  Company Number: CN-MLMSERVICE-20251219-PI759473-00165-1

PATIENT
  Age: 55 Year
  Sex: Female

DRUGS (16)
  1. CYCLOPHOSPHAMIDE [Suspect]
     Active Substance: CYCLOPHOSPHAMIDE
     Indication: T-cell prolymphocytic leukaemia
     Dosage: 1.2 G (CHOP REGIMEN, FIRST CYCLE)
     Route: 065
     Dates: start: 2024, end: 2024
  2. CYCLOPHOSPHAMIDE [Suspect]
     Active Substance: CYCLOPHOSPHAMIDE
     Dosage: 0.5 G, QD (CHOP REGIMEN, SECOND CYCLE, ON DAYS 1-2)
     Route: 065
     Dates: start: 2024, end: 2025
  3. EPIRUBICIN [Suspect]
     Active Substance: EPIRUBICIN
     Indication: T-cell prolymphocytic leukaemia
     Dosage: 100 MG (FIRST CYCLE, CHOP REGIMEN)
     Route: 065
     Dates: start: 2024, end: 2024
  4. VINCRISTINE [Suspect]
     Active Substance: VINCRISTINE
     Indication: T-cell prolymphocytic leukaemia
     Dosage: 2 MG (FIRST CYCLE, CHOP REGIMEN)
     Route: 065
     Dates: start: 2024, end: 2024
  5. VINCRISTINE [Suspect]
     Active Substance: VINCRISTINE
     Dosage: 1 MG (SECOND CYCLE, CHOP REGIMEN)
     Route: 065
     Dates: start: 2024, end: 2025
  6. METHOTREXATE [Suspect]
     Active Substance: METHOTREXATE
     Indication: T-cell prolymphocytic leukaemia
     Dosage: FIRST CYCLE
     Route: 033
     Dates: start: 2024
  7. CYTARABINE [Suspect]
     Active Substance: CYTARABINE
     Indication: T-cell prolymphocytic leukaemia
     Dosage: FIRST CYCLE
     Route: 065
  8. DEXAMETHASONE [Suspect]
     Active Substance: DEXAMETHASONE
     Indication: T-cell prolymphocytic leukaemia
     Dosage: FIRST CYCLE
     Route: 065
  9. TUCIDINOSTAT [Suspect]
     Active Substance: TUCIDINOSTAT
     Indication: T-cell prolymphocytic leukaemia
     Dosage: 20 MG, 2X A WEEK (SECOND CYCLE)
     Route: 065
     Dates: start: 2024, end: 2025
  10. TUCIDINOSTAT [Suspect]
     Active Substance: TUCIDINOSTAT
     Dosage: 10 MG, QD
     Route: 065
     Dates: start: 2025, end: 2025
  11. DOXORUBICIN [Suspect]
     Active Substance: DOXORUBICIN
     Indication: T-cell prolymphocytic leukaemia
     Dosage: 10 MG, QD (LIPOSOMAL, 10 MG ON DAY 1, SECOND CYCLE)
     Route: 065
  12. DOXORUBICIN [Suspect]
     Active Substance: DOXORUBICIN
     Dosage: 20 MG, QD (20 MG ON DAY 2, SECOND CYCLE)
     Route: 065
  13. PREDNISONE [Suspect]
     Active Substance: PREDNISONE
     Indication: T-cell prolymphocytic leukaemia
     Dosage: 30 MG, QD (DAYS 1-5, SECOND CYCLE)
     Route: 065
     Dates: start: 2024, end: 2025
  14. GEMCITABINE [Suspect]
     Active Substance: GEMCITABINE
     Indication: T-cell prolymphocytic leukaemia
     Dosage: 0.4 G (LOW-DOSE)
     Route: 065
     Dates: start: 2025, end: 2025
  15. GOLIDOCITINIB [Suspect]
     Active Substance: GOLIDOCITINIB
     Indication: T-cell prolymphocytic leukaemia
     Dosage: 150 MG, QD (LOW DOSE)
     Route: 065
     Dates: start: 2025, end: 2025
  16. METHYLPREDNISOLONE [Suspect]
     Active Substance: METHYLPREDNISOLONE
     Indication: T-cell prolymphocytic leukaemia
     Dosage: UNK
     Route: 065

REACTIONS (19)
  - T-cell prolymphocytic leukaemia [Unknown]
  - Disease progression [Unknown]
  - Penicillium infection [Recovering/Resolving]
  - Thrombocytopenia [Recovering/Resolving]
  - Epistaxis [Recovering/Resolving]
  - Ecchymosis [Recovering/Resolving]
  - Petechiae [Recovering/Resolving]
  - Neutropenia [Recovering/Resolving]
  - Pyrexia [Recovered/Resolved]
  - Abdominal distension [Recovering/Resolving]
  - Oedema peripheral [Recovering/Resolving]
  - C-reactive protein increased [Recovering/Resolving]
  - Procalcitonin increased [Recovering/Resolving]
  - Interleukin level increased [Recovering/Resolving]
  - Hepatosplenomegaly [Recovering/Resolving]
  - Cytomegalovirus infection [Recovering/Resolving]
  - Human herpesvirus 6 infection [Recovering/Resolving]
  - Epstein-Barr virus infection [Recovering/Resolving]
  - Blood disorder [Recovering/Resolving]

NARRATIVE: CASE EVENT DATE: 20250101
